FAERS Safety Report 15671960 (Version 1)
Quarter: 2018Q4

REPORT INFORMATION
  Report Type: Report from Study
  Country: US (occurrence: US)
  Receive Date: 20181129
  Receipt Date: 20181129
  Transmission Date: 20190205
  Serious: Yes (Other)
  Sender: FDA-Public Use
  Company Number: US-TESARO, INC-US-2018TSO01769

PATIENT
  Age: 67 Year
  Sex: Female

DRUGS (2)
  1. ZEJULA [Suspect]
     Active Substance: NIRAPARIB
     Dosage: 300 MG, QD
     Route: 048
     Dates: start: 20180502
  2. ZEJULA [Suspect]
     Active Substance: NIRAPARIB
     Indication: OVARIAN CANCER
     Dosage: 100 MG, QD
     Route: 048
     Dates: start: 20180403

REACTIONS (19)
  - Carbohydrate antigen 125 increased [Not Recovered/Not Resolved]
  - Drug ineffective [Unknown]
  - Emotional distress [Unknown]
  - Constipation [Not Recovered/Not Resolved]
  - Feeling abnormal [Not Recovered/Not Resolved]
  - Headache [Not Recovered/Not Resolved]
  - Nausea [Not Recovered/Not Resolved]
  - Decreased appetite [Recovering/Resolving]
  - Fatigue [Not Recovered/Not Resolved]
  - Heart rate increased [Unknown]
  - Adverse drug reaction [Recovered/Resolved]
  - Dizziness [Unknown]
  - Dry skin [Not Recovered/Not Resolved]
  - Dry eye [Not Recovered/Not Resolved]
  - Eye inflammation [Unknown]
  - Paraesthesia [Unknown]
  - Blood pressure increased [Recovering/Resolving]
  - Gastrooesophageal reflux disease [Not Recovered/Not Resolved]
  - Intentional underdose [Recovered/Resolved]

NARRATIVE: CASE EVENT DATE: 20180403
